FAERS Safety Report 7312931-3 (Version None)
Quarter: 2011Q1

REPORT INFORMATION
  Report Type: 
  Country: None (occurrence: None)
  Receive Date: 20110224
  Receipt Date: 20110215
  Transmission Date: 20110831
  Serious: Yes (Other)
  Sender: FDA-Public Use
  Company Number: DE-WATSON-2011-02024

PATIENT
  Age: 10 Year
  Sex: Female

DRUGS (2)
  1. METHYLPREDNISOLONE ACETATE [Suspect]
     Indication: POLYCHONDRITIS
     Dosage: 1 G, DAILY
     Route: 042
  2. PREDNISONE [Suspect]
     Indication: POLYCHONDRITIS
     Dosage: 30 MG, DAILY

REACTIONS (1)
  - EPIDURAL LIPOMATOSIS [None]
